FAERS Safety Report 4532872-4 (Version None)
Quarter: 2004Q4

REPORT INFORMATION
  Report Type: 
  Country: None (occurrence: None)
  Receive Date: 20041221
  Receipt Date: 20041208
  Transmission Date: 20050328
  Serious: Yes (Death, Other)
  Sender: FDA-Public Use
  Company Number: PHEH2004US13139

PATIENT
  Age: 83 Year
  Sex: Female

DRUGS (18)
  1. ZOMETA [Suspect]
     Indication: MULTIPLE MYELOMA
     Dosage: 4MG Q MONTH
     Route: 042
     Dates: start: 20020610, end: 20040430
  2. DURAGESIC [Concomitant]
     Indication: PAIN
     Dosage: 100 MCG Q72H
     Dates: start: 20021001
  3. PERCOCET [Concomitant]
     Indication: PAIN
     Dosage: 1-2 TABS PEN
     Dates: start: 20021001
  4. NEURONTIN [Concomitant]
     Indication: NEUROPATHY
     Dosage: 300 G, TID
     Dates: start: 20021001
  5. CARDIZEM [Concomitant]
     Indication: HYPERTENSION
     Dosage: 100 G, QD
  6. ZYPREXA [Concomitant]
     Indication: DEPRESSION
  7. LEXAPRO [Concomitant]
     Indication: DEPRESSION
  8. OXYCONTIN [Concomitant]
     Indication: PAIN
     Dosage: 15 MG, BID
     Dates: start: 20020901, end: 20020901
  9. OXYCONTIN [Concomitant]
     Dosage: 40 MG, BID
     Dates: start: 20040723, end: 20040901
  10. ARANESP [Concomitant]
     Indication: ANAEMIA
     Dosage: 200 MCG Q2W
     Dates: start: 20031216, end: 20040820
  11. VIOXX [Concomitant]
     Indication: PAIN
     Dosage: 25 MG, QD
     Dates: start: 20021120, end: 20040928
  12. ACTIQ [Concomitant]
     Indication: PAIN
     Dates: start: 20040827, end: 20040926
  13. PREDNISONE TAB [Concomitant]
     Indication: MULTIPLE MYELOMA
     Dosage: 100MG QD FOR 4DAYS Q4W
     Dates: start: 20021028, end: 20021201
  14. PREDNISONE TAB [Concomitant]
     Dosage: 60 MG QD FOR 4DAYS
     Dates: start: 20030312, end: 20030601
  15. PREDNISONE TAB [Concomitant]
     Dosage: 80MG Q4DAYS
     Dates: start: 20040811, end: 20040928
  16. MELPHALAN [Concomitant]
     Indication: MULTIPLE MYELOMA
     Dosage: 40MG Q4D Q4W
     Dates: start: 20021028, end: 20021201
  17. MELPHALAN [Concomitant]
     Dosage: 10 MG QD X4D
     Dates: start: 20030312, end: 20030601
  18. MELPHALAN [Concomitant]
     Dosage: 40MG QD X4D
     Dates: start: 20040811, end: 20040928

REACTIONS (2)
  - MYOCARDIAL INFARCTION [None]
  - OSTEOMYELITIS [None]
